FAERS Safety Report 25702544 (Version 1)
Quarter: 2025Q3

REPORT INFORMATION
  Report Type: Spontaneous
  Country: UA (occurrence: None)
  Receive Date: 20250819
  Receipt Date: 20250819
  Transmission Date: 20251021
  Serious: Yes (Other)
  Sender: Harrow Health
  Company Number: NVSC2025UA125025

PATIENT

DRUGS (2)
  1. MAXIDEX [Suspect]
     Active Substance: DEXAMETHASONE
     Indication: Iridocyclitis
     Route: 047
  2. MAXIDEX [Suspect]
     Active Substance: DEXAMETHASONE
     Route: 047

REACTIONS (2)
  - Iridocyclitis [Unknown]
  - Disease recurrence [Unknown]
